FAERS Safety Report 20068759 (Version 1)
Quarter: 2021Q4

REPORT INFORMATION
  Report Type: Spontaneous
  Country: US (occurrence: US)
  Receive Date: 20211115
  Receipt Date: 20211115
  Transmission Date: 20220303
  Serious: Yes (Other)
  Sender: FDA-Public Use
  Company Number: US-PFIZER INC-202101213330

PATIENT
  Age: 58 Year
  Sex: Male

DRUGS (2)
  1. XELJANZ XR [Suspect]
     Active Substance: TOFACITINIB CITRATE
     Dosage: 11 MG
     Dates: start: 202109
  2. XELJANZ XR [Suspect]
     Active Substance: TOFACITINIB CITRATE
     Dosage: 11 MG
     Dates: start: 202109

REACTIONS (8)
  - Spinal disorder [Unknown]
  - Depression [Unknown]
  - Headache [Unknown]
  - Dizziness [Unknown]
  - Dyspepsia [Unknown]
  - Pain [Unknown]
  - Fatigue [Unknown]
  - Limb injury [Unknown]
